FAERS Safety Report 4397751-4 (Version None)
Quarter: 2004Q3

REPORT INFORMATION
  Report Type: 
  Country: None (occurrence: None)
  Receive Date: 20040713
  Receipt Date: 20040628
  Transmission Date: 20050211
  Serious: Yes (Other)
  Sender: FDA-Public Use
  Company Number: US-JNJFOC-20040608546

PATIENT
  Age: 71 Year
  Sex: Female
  Weight: 50.8029 kg

DRUGS (6)
  1. REMICADE [Suspect]
     Indication: RHEUMATOID ARTHRITIS
     Dosage: SEE IMAGE
     Route: 042
     Dates: start: 20020101
  2. REMICADE [Suspect]
     Indication: RHEUMATOID ARTHRITIS
     Dosage: SEE IMAGE
     Route: 042
     Dates: start: 20031101
  3. REMICADE [Suspect]
     Indication: RHEUMATOID ARTHRITIS
     Dosage: SEE IMAGE
     Route: 042
     Dates: start: 20040501
  4. METHOTREXATE [Concomitant]
  5. PREDNISONE TAB [Concomitant]
  6. FOLIC ACID [Concomitant]

REACTIONS (3)
  - DRUG EFFECT DECREASED [None]
  - MACULAR DEGENERATION [None]
  - RENAL CELL CARCINOMA STAGE UNSPECIFIED [None]
